FAERS Safety Report 10414109 (Version 2)
Quarter: 2014Q3

REPORT INFORMATION
  Report Type: Spontaneous
  Country: US (occurrence: US)
  Receive Date: 20140827
  Receipt Date: 20140827
  Transmission Date: 20150326
  Serious: No
  Sender: FDA-Public Use
  Company Number: US-ASTRAZENECA-2013SE86412

PATIENT
  Age: 29151 Day
  Sex: Female
  Weight: 47.6 kg

DRUGS (6)
  1. SYMBICORT [Suspect]
     Active Substance: BUDESONIDE\FORMOTEROL FUMARATE DIHYDRATE
     Indication: ASTHMA
     Dosage: 2 PUFFS BID
     Route: 055
     Dates: start: 20131121
  2. NICOTINE. [Concomitant]
     Active Substance: NICOTINE
     Dates: start: 20131105
  3. SYMBICORT [Suspect]
     Active Substance: BUDESONIDE\FORMOTEROL FUMARATE DIHYDRATE
     Indication: CHRONIC OBSTRUCTIVE PULMONARY DISEASE
     Dosage: 2 PUFFS BID
     Route: 055
     Dates: start: 20131121
  4. DUONEB [Concomitant]
     Active Substance: ALBUTEROL SULFATE\IPRATROPIUM BROMIDE
     Indication: ASTHMA
     Dosage: TID
     Route: 055
     Dates: start: 20131105
  5. THEOPHYLLINE [Concomitant]
     Active Substance: THEOPHYLLINE
     Indication: ASTHMA
     Route: 048
  6. ADVAIR HFA [Concomitant]
     Active Substance: FLUTICASONE PROPIONATE\SALMETEROL XINAFOATE

REACTIONS (3)
  - Incorrect dose administered [Unknown]
  - Asthenia [Unknown]
  - Cough [Recovered/Resolved]

NARRATIVE: CASE EVENT DATE: 20131121
